FAERS Safety Report 12067190 (Version 1)
Quarter: 2016Q1

REPORT INFORMATION
  Report Type: Spontaneous
  Country: US (occurrence: US)
  Receive Date: 20160210
  Receipt Date: 20160210
  Transmission Date: 20160526
  Serious: No
  Sender: FDA-Public Use
  Company Number: US-JNJFOC-20160119823

PATIENT
  Sex: Male

DRUGS (1)
  1. TOPAMAX [Suspect]
     Active Substance: TOPIRAMATE
     Indication: NEUROPATHY PERIPHERAL
     Route: 048

REACTIONS (4)
  - Confusional state [Unknown]
  - Product use issue [Unknown]
  - Thinking abnormal [Unknown]
  - Off label use [Unknown]
